FAERS Safety Report 5700825-6 (Version None)
Quarter: 2008Q2

REPORT INFORMATION
  Report Type: 
  Country: None (occurrence: None)
  Receive Date: 20080410
  Receipt Date: 20080328
  Transmission Date: 20081010
  Serious: Yes (Hospitalization, Other)
  Sender: FDA-Public Use
  Company Number: FR-GILEAD-2008-0015909

PATIENT
  Sex: Male

DRUGS (4)
  1. TRUVADA [Suspect]
     Indication: HIV INFECTION
     Route: 048
     Dates: start: 20070801
  2. TELZIR [Concomitant]
     Indication: HIV INFECTION
     Dates: start: 20050713
  3. LANTUS [Concomitant]
     Indication: TYPE 1 DIABETES MELLITUS
  4. NOVORAPID [Concomitant]
     Indication: TYPE 1 DIABETES MELLITUS

REACTIONS (2)
  - BACK PAIN [None]
  - NEPHROLITHIASIS [None]
